FAERS Safety Report 19188203 (Version 2)
Quarter: 2021Q2

REPORT INFORMATION
  Report Type: Report from Study
  Country: US (occurrence: US)
  Receive Date: 20210427
  Receipt Date: 20210511
  Transmission Date: 20210717
  Serious: Yes (Hospitalization, Other)
  Sender: FDA-Public Use
  Company Number: US-ROCHE-2812392

PATIENT
  Age: 73 Year
  Sex: Female
  Weight: 97.5 kg

DRUGS (7)
  1. PRINIVIL [Concomitant]
     Active Substance: LISINOPRIL
  2. BEVACIZUMAB. [Suspect]
     Active Substance: BEVACIZUMAB
     Indication: OVARIAN CANCER
     Dosage: OVER 90 MINUTES ON DAYS 1 AND 15?ON 09/FEB/2021, SHE RECEIVED MOST RECENT DOSE OF BEVACIZUMAB 1000 M
     Route: 042
     Dates: start: 20200922
  3. ATEZOLIZUMAB. [Suspect]
     Active Substance: ATEZOLIZUMAB
     Indication: OVARIAN CANCER
     Dosage: OVER 1 HOUR ON DAYS 1 AND 15?ON 09/FEB/2021, SHE RECEIVED MOST RECENT DOSE OF ATEZOLIZUMAB 800 MG
     Route: 041
     Dates: start: 20200922
  4. LASIX [Concomitant]
     Active Substance: FUROSEMIDE
  5. NORVASC [Concomitant]
     Active Substance: AMLODIPINE BESYLATE
  6. LIPOSOMAL DOXORUBICIN [Suspect]
     Active Substance: DOXORUBICIN HYDROCHLORIDE
     Indication: OVARIAN CANCER
     Dosage: ON 09/FEB/2021, SHE RECEIVED MOST RECENT DOSE OF LIPOSOMAL DOXORUBICIN 84 MG?OVER 1 HOUR ON DAY 1
     Route: 042
     Dates: start: 20200922
  7. REQUIP [Concomitant]
     Active Substance: ROPINIROLE HYDROCHLORIDE

REACTIONS (6)
  - Stomatitis [Recovered/Resolved]
  - Dysarthria [Recovered/Resolved]
  - Stomatitis [Not Recovered/Not Resolved]
  - Asthenia [Recovered/Resolved]
  - Dysarthria [Not Recovered/Not Resolved]
  - Muscular weakness [Not Recovered/Not Resolved]

NARRATIVE: CASE EVENT DATE: 20210222
